FAERS Safety Report 17044380 (Version 1)
Quarter: 2019Q4

REPORT INFORMATION
  Report Type: Spontaneous
  Country: US (occurrence: US)
  Receive Date: 20191017
  Receipt Date: 20191017
  Transmission Date: 20200122
  Serious: No
  Sender: FDA-Public Use
  Company Number: None

PATIENT
  Age: 65 Year
  Sex: Female
  Weight: 102.51 kg

DRUGS (22)
  1. HYDROXYCHLOROGVIN 200MG [Concomitant]
  2. MONTULUKAST 10MG [Concomitant]
  3. IRBESARTIN 150MG [Concomitant]
  4. BACLOFIN 10MG [Concomitant]
  5. NEBULIZER [Concomitant]
     Active Substance: DEVICE
  6. VITAMIN B COMPLEX [Concomitant]
     Active Substance: CYANOCOBALAMIN\DEXPANTHENOL\NIACINAMIDE\PYRIDOXINE HYDROCHLORIDE\RIBOFLAVIN 5^-PHOSPHATE SODIUM\THIAMINE HYDROCHLORIDE\VITAMIN B COMPLEX
  7. MULTIVITAMIN [Concomitant]
     Active Substance: VITAMINS
  8. HEADACHE RELIF [Concomitant]
  9. LOSARTIN 10MG [Concomitant]
  10. METHOCARBAMOL 750MG [Concomitant]
     Active Substance: METHOCARBAMOL
  11. CALCIUM CITRATE [Concomitant]
     Active Substance: CALCIUM CITRATE
  12. VITAMIN C [Concomitant]
     Active Substance: ASCORBIC ACID
  13. ASPIRIN 250 [Concomitant]
  14. BI-PAP [Concomitant]
     Active Substance: DEVICE
  15. 02 CONSENTRATER [Concomitant]
  16. FUROSEMIDE 40MG [Concomitant]
     Active Substance: FUROSEMIDE
  17. ACETMIN 250 [Concomitant]
  18. CAFFEINE 65 [Concomitant]
  19. ALENDRONATE SODIUM 70MG [Suspect]
     Active Substance: ALENDRONATE SODIUM
     Indication: OSTEOPOROSIS
     Dosage: ?          QUANTITY:1 DF DOSAGE FORM;?
     Route: 048
     Dates: start: 20190428, end: 20190714
  20. OMEPRAZOLE 20MG [Concomitant]
     Active Substance: OMEPRAZOLE
  21. ASPIRIN 81MG [Concomitant]
     Active Substance: ASPIRIN
  22. POTASSIUM 10MG [Concomitant]

REACTIONS (6)
  - Abdominal discomfort [None]
  - Asthenia [None]
  - Muscle spasms [None]
  - Back pain [None]
  - Fatigue [None]
  - Alopecia [None]

NARRATIVE: CASE EVENT DATE: 20190428
